FAERS Safety Report 15420238 (Version 3)
Quarter: 2018Q4

REPORT INFORMATION
  Report Type: Report from Study
  Country: DE (occurrence: DE)
  Receive Date: 20180924
  Receipt Date: 20181113
  Transmission Date: 20190204
  Serious: Yes (Hospitalization)
  Sender: FDA-Public Use
  Company Number: DE-OTSUKA-2018_031520

PATIENT
  Sex: Male
  Weight: 98 kg

DRUGS (6)
  1. TOLVAPTAN [Suspect]
     Active Substance: TOLVAPTAN
     Dosage: 15 MG, QD
     Route: 048
     Dates: start: 20171222, end: 20180520
  2. TOLVAPTAN [Suspect]
     Active Substance: TOLVAPTAN
     Indication: CONGENITAL CYSTIC KIDNEY DISEASE
     Dosage: 45 MG, QD
     Route: 048
     Dates: start: 20171222, end: 20180520
  3. ASPIRIN. [Concomitant]
     Active Substance: ASPIRIN
     Indication: AMAUROSIS
     Dosage: 100 MG, QD
     Route: 048
     Dates: start: 20180917
  4. CANDESARTAN. [Concomitant]
     Active Substance: CANDESARTAN
     Indication: HYPERTENSION
     Dosage: 16 MG, UNK
     Route: 048
  5. ATORVASTATIN [Concomitant]
     Active Substance: ATORVASTATIN
     Indication: AMAUROSIS
     Dosage: 40 MG, QD
     Route: 048
     Dates: start: 20180917
  6. TOLVAPTAN [Suspect]
     Active Substance: TOLVAPTAN
     Dosage: 15 MG, QD
     Route: 048
     Dates: start: 20171124, end: 20171221

REACTIONS (1)
  - Amaurosis [Recovered/Resolved]

NARRATIVE: CASE EVENT DATE: 20180917
